FAERS Safety Report 20459897 (Version 2)
Quarter: 2022Q1

REPORT INFORMATION
  Report Type: Report from Study
  Country: BR (occurrence: None)
  Receive Date: 20220211
  Receipt Date: 20220228
  Transmission Date: 20220423
  Serious: Yes (Hospitalization)
  Sender: FDA-Public Use
  Company Number: BR-ROCHE-3019851

PATIENT
  Age: 78 Year
  Sex: Male
  Weight: 99.8 kg

DRUGS (26)
  1. ATEZOLIZUMAB [Suspect]
     Active Substance: ATEZOLIZUMAB
     Indication: Malignant melanoma
     Dosage: DATE OF LAST DOSE OF ATEZOLIZUMAB PRIOR TO SAE ONSET :18/JAN/2022
     Route: 041
     Dates: start: 20190710
  2. COBIMETINIB [Suspect]
     Active Substance: COBIMETINIB
     Indication: Malignant melanoma
     Dosage: DATE OF LAST DOSE OF COBIMETINIB PRIOR TO SAE ONSET :30/JAN/2022
     Route: 048
     Dates: start: 20190710
  3. ENALAPRIL [Concomitant]
     Active Substance: ENALAPRIL
     Indication: Hypertension
     Route: 048
     Dates: start: 2017, end: 20200122
  4. ENALAPRIL [Concomitant]
     Active Substance: ENALAPRIL
     Route: 048
     Dates: start: 20200221, end: 20200510
  5. ENALAPRIL [Concomitant]
     Active Substance: ENALAPRIL
     Route: 048
     Dates: start: 20210420
  6. FUROSEMIDE [Concomitant]
     Active Substance: FUROSEMIDE
     Route: 048
     Dates: start: 2017
  7. FUROSEMIDE [Concomitant]
     Active Substance: FUROSEMIDE
     Route: 048
     Dates: start: 20211215
  8. ASPIRIN [Concomitant]
     Active Substance: ASPIRIN
     Route: 048
     Dates: start: 2017
  9. DIAZEPAM [Concomitant]
     Active Substance: DIAZEPAM
     Route: 048
     Dates: start: 20190615, end: 20200220
  10. FLUOXETINE [Concomitant]
     Active Substance: FLUOXETINE HYDROCHLORIDE
     Route: 048
     Dates: start: 20190615, end: 2019
  11. FLUOXETINE [Concomitant]
     Active Substance: FLUOXETINE HYDROCHLORIDE
     Route: 061
     Dates: start: 201909
  12. LOPERAMIDE [Concomitant]
     Active Substance: LOPERAMIDE
     Route: 048
     Dates: start: 20191016, end: 20191016
  13. LOPERAMIDE [Concomitant]
     Active Substance: LOPERAMIDE
     Route: 048
     Dates: start: 20200912, end: 20200912
  14. LOPERAMIDE [Concomitant]
     Active Substance: LOPERAMIDE
     Route: 048
     Dates: start: 20210102
  15. LOPERAMIDE [Concomitant]
     Active Substance: LOPERAMIDE
     Route: 048
     Dates: start: 20220102
  16. LOPERAMIDE [Concomitant]
     Active Substance: LOPERAMIDE
     Route: 048
     Dates: start: 20200224, end: 202003
  17. DIPYRONE [Concomitant]
     Active Substance: DIPYRONE
     Route: 048
     Dates: start: 20201223
  18. METOPROLOL [Concomitant]
     Active Substance: METOPROLOL
     Route: 048
     Dates: start: 20210420
  19. AZITHROMYCIN [Concomitant]
     Active Substance: AZITHROMYCIN
     Route: 048
     Dates: start: 20211015, end: 20211020
  20. RIVAROXABAN [Concomitant]
     Active Substance: RIVAROXABAN
     Route: 048
     Dates: start: 20211019
  21. BETAMETHASONE [Concomitant]
     Active Substance: BETAMETHASONE
     Route: 061
     Dates: start: 20210803
  22. ATORVASTATIN [Concomitant]
     Active Substance: ATORVASTATIN
     Route: 048
     Dates: start: 20211019
  23. BACITRACIN ZINC\NEOMYCIN SULFATE [Concomitant]
     Active Substance: BACITRACIN ZINC\NEOMYCIN SULFATE
     Dosage: UNKNOWN
     Route: 061
     Dates: start: 20220119
  24. AMOXICILLIN\CLAVULANIC ACID [Concomitant]
     Active Substance: AMOXICILLIN\CLAVULANIC ACID
     Route: 048
     Dates: start: 20220125, end: 20220131
  25. VANCOMYCIN [Concomitant]
     Active Substance: VANCOMYCIN
     Route: 042
     Dates: start: 20220131
  26. PIPERACILLIN SODIUM\TAZOBACTAM SODIUM [Concomitant]
     Active Substance: PIPERACILLIN SODIUM\TAZOBACTAM SODIUM
     Route: 042
     Dates: start: 20220131

REACTIONS (1)
  - Cellulitis [Recovered/Resolved]

NARRATIVE: CASE EVENT DATE: 20220122
